FAERS Safety Report 19938053 (Version 1)
Quarter: 2021Q4

REPORT INFORMATION
  Report Type: Other
  Country: US (occurrence: US)
  Receive Date: 20211011
  Receipt Date: 20211011
  Transmission Date: 20220303
  Serious: No
  Sender: FDA-Public Use
  Company Number: US-ROCHE-2746573

PATIENT
  Age: 64 Year
  Sex: Female

DRUGS (2)
  1. VEMURAFENIB [Suspect]
     Active Substance: VEMURAFENIB
     Indication: Non-small cell lung cancer
     Route: 065
  2. TRAMETINIB [Suspect]
     Active Substance: TRAMETINIB
     Indication: Non-small cell lung cancer
     Route: 065

REACTIONS (2)
  - Renal disorder [Recovered/Resolved]
  - Proteinuria [Recovered/Resolved]
